FAERS Safety Report 11875707 (Version 1)
Quarter: 2015Q4

REPORT INFORMATION
  Report Type: Spontaneous
  Country: ES (occurrence: ES)
  Receive Date: 20151229
  Receipt Date: 20151229
  Transmission Date: 20160305
  Serious: Yes (Other)
  Sender: FDA-Public Use
  Company Number: ES-TEVA-621381ISR

PATIENT
  Age: 83 Year
  Sex: Female

DRUGS (6)
  1. ROTIGOTINE [Suspect]
     Active Substance: ROTIGOTINE
     Route: 065
  2. AMILORIDE [Suspect]
     Active Substance: AMILORIDE
     Route: 065
  3. RISPERIDONE. [Suspect]
     Active Substance: RISPERIDONE
     Indication: DEMENTIA
     Route: 048
  4. TORASEMIDE [Suspect]
     Active Substance: TORSEMIDE
     Route: 065
  5. CEFUROXIME. [Suspect]
     Active Substance: CEFUROXIME
     Route: 065
  6. HYDROCHLOROTHIAZIDE. [Suspect]
     Active Substance: HYDROCHLOROTHIAZIDE
     Route: 065

REACTIONS (3)
  - Constipation [Recovering/Resolving]
  - Antidiuretic hormone abnormality [Recovering/Resolving]
  - Hyponatraemia [Recovering/Resolving]
